FAERS Safety Report 7983538-X (Version None)
Quarter: 2011Q4

REPORT INFORMATION
  Report Type: 
  Country: None (occurrence: None)
  Receive Date: 20111215
  Receipt Date: 20111208
  Transmission Date: 20120403
  Serious: Yes (Hospitalization, Other)
  Sender: FDA-Public Use
  Company Number: JP-CEPHALON-2011004046

PATIENT
  Age: 68 Year
  Sex: Female
  Weight: 44 kg

DRUGS (10)
  1. BENDAMUSTINE HCL [Suspect]
     Indication: LYMPHOMA
     Route: 042
     Dates: start: 20110131, end: 20110201
  2. BENDAMUSTINE HCL [Suspect]
     Route: 042
     Dates: start: 20110406, end: 20110407
  3. ENTECAVIR [Concomitant]
  4. AMLODIPINE BESYLATE [Concomitant]
  5. ONDANSETRON [Concomitant]
     Dates: start: 20110202, end: 20110203
  6. GRANISETRON HCL [Concomitant]
     Dates: start: 20110131, end: 20110625
  7. BENDAMUSTINE HCL [Suspect]
     Route: 042
     Dates: start: 20110628
  8. ACYCLOVIR [Concomitant]
     Dates: start: 20110131
  9. COTRIM [Concomitant]
     Dates: start: 20110131
  10. PRAVASTATIN SODIUM [Concomitant]

REACTIONS (6)
  - PLATELET COUNT DECREASED [None]
  - NEUTROPHIL COUNT DECREASED [None]
  - LYMPHOCYTE COUNT DECREASED [None]
  - ANAEMIA [None]
  - HYPOGAMMAGLOBULINAEMIA [None]
  - WHITE BLOOD CELL COUNT DECREASED [None]
